FAERS Safety Report 17703611 (Version 1)
Quarter: 2020Q2

REPORT INFORMATION
  Report Type: Spontaneous
  Country: US (occurrence: US)
  Receive Date: 20200423
  Receipt Date: 20200423
  Transmission Date: 20200714
  Serious: No
  Sender: FDA-Public Use
  Company Number: None

PATIENT
  Age: 38 Year
  Sex: Male

DRUGS (1)
  1. EPCLUSA [Suspect]
     Active Substance: SOFOSBUVIR\VELPATASVIR
     Dosage: ?          OTHER DOSE:NOT AVAILABLE;?
     Route: 048
     Dates: start: 202003

REACTIONS (2)
  - Headache [None]
  - Abnormal dreams [None]

NARRATIVE: CASE EVENT DATE: 20200423
